FAERS Safety Report 24143920 (Version 1)
Quarter: 2024Q3

REPORT INFORMATION
  Report Type: Spontaneous
  Country: CN (occurrence: CN)
  Receive Date: 20240727
  Receipt Date: 20240727
  Transmission Date: 20241017
  Serious: Yes (Other)
  Sender: ACCORD
  Company Number: None

PATIENT
  Age: 53 Year
  Sex: Female
  Weight: 50 kg

DRUGS (8)
  1. TRASTUZUMAB [Suspect]
     Active Substance: TRASTUZUMAB
     Indication: Invasive breast carcinoma
     Dosage: 300 MILLIGRAM, QD
     Route: 042
     Dates: start: 20240506, end: 20240506
  2. CARBOPLATIN [Suspect]
     Active Substance: CARBOPLATIN
     Indication: Invasive breast carcinoma
     Dosage: 500 MILLIGRAM, QD
     Route: 042
     Dates: start: 20240507, end: 20240507
  3. DOCETAXEL [Suspect]
     Active Substance: DOCETAXEL\DOCETAXEL ANHYDROUS
     Indication: Invasive breast carcinoma
     Dosage: 110 MILLIGRAM, QD
     Route: 042
     Dates: start: 20240507, end: 20240507
  4. PERJETA [Suspect]
     Active Substance: PERTUZUMAB
     Indication: Invasive breast carcinoma
     Dosage: 420 MILLIGRAM, QD
     Route: 042
     Dates: start: 20240506, end: 20240506
  5. CARBOPLATIN [Suspect]
     Active Substance: CARBOPLATIN
     Indication: Human epidermal growth factor receptor positive
     Dosage: 500 MILLIGRAM, QD
     Route: 042
     Dates: start: 20240507, end: 20240507
  6. TRASTUZUMAB [Suspect]
     Active Substance: TRASTUZUMAB
     Indication: Human epidermal growth factor receptor positive
     Dosage: 300 MILLIGRAM, QD
     Route: 042
     Dates: start: 20240506, end: 20240506
  7. DOCETAXEL [Suspect]
     Active Substance: DOCETAXEL\DOCETAXEL ANHYDROUS
     Indication: Human epidermal growth factor receptor positive
     Dosage: 110 MILLIGRAM, QD
     Route: 042
     Dates: start: 20240507, end: 20240507
  8. PERJETA [Suspect]
     Active Substance: PERTUZUMAB
     Indication: Human epidermal growth factor receptor positive
     Dosage: 420 MILLIGRAM, QD
     Route: 042
     Dates: start: 20240506, end: 20240506

REACTIONS (3)
  - Neutrophil count decreased [Recovered/Resolved]
  - Transaminases increased [Recovered/Resolved]
  - White blood cell count decreased [Recovered/Resolved]

NARRATIVE: CASE EVENT DATE: 20240513
